FAERS Safety Report 8074011-1 (Version None)
Quarter: 2012Q1

REPORT INFORMATION
  Report Type: 
  Country: None (occurrence: None)
  Receive Date: 20120126
  Receipt Date: 20120124
  Transmission Date: 20120608
  Serious: Yes (Death, Hospitalization)
  Sender: FDA-Public Use
  Company Number: AU-B.I. PHARMACEUTICALS,INC./RIDGEFIELD-2012-AU-00135AU

PATIENT
  Sex: Male
  Weight: 71 kg

DRUGS (16)
  1. PROGOUT [Concomitant]
  2. CARVEDILOL [Concomitant]
  3. LIPITOR [Concomitant]
  4. LASIX [Concomitant]
  5. PRADAXA [Suspect]
     Indication: CEREBROVASCULAR ACCIDENT PROPHYLAXIS
     Dosage: 220 MG
     Dates: start: 20110718, end: 20110818
  6. PRADAXA [Suspect]
     Indication: ATRIAL FIBRILLATION
  7. PANTOPRAZOLE [Concomitant]
  8. SERETIDE [Concomitant]
  9. SPIRACTIN [Concomitant]
  10. ASPIRIN [Concomitant]
  11. SPIRIVA [Concomitant]
  12. COLGOUT [Concomitant]
  13. PERINDOPRIL ERBUMINE [Concomitant]
  14. NORVASC [Concomitant]
  15. FOLIC ACID [Concomitant]
  16. NITRO-DUR [Concomitant]

REACTIONS (3)
  - PNEUMONIA ESCHERICHIA [None]
  - ASPIRATION [None]
  - GASTROINTESTINAL HAEMORRHAGE [None]
